FAERS Safety Report 5952632-7 (Version None)
Quarter: 2008Q4

REPORT INFORMATION
  Report Type: 
  Country: None (occurrence: None)
  Receive Date: 20081028
  Receipt Date: 20080714
  Transmission Date: 20090506
  Serious: Yes (Other)
  Sender: FDA-Public Use
  Company Number: 174457USA

PATIENT
  Age: 55 Year
  Sex: Male
  Weight: 172.3669 kg

DRUGS (1)
  1. CLONAZEPAM [Suspect]
     Indication: ANXIETY
     Dosage: OR AS NEEDED (1 MG,1 IN 1 D),ORAL
     Route: 048
     Dates: start: 20071015, end: 20071029

REACTIONS (1)
  - DRUG INEFFECTIVE [None]
